FAERS Safety Report 13549338 (Version 1)
Quarter: 2017Q2

REPORT INFORMATION
  Report Type: Spontaneous
  Country: US (occurrence: US)
  Receive Date: 20170516
  Receipt Date: 20170516
  Transmission Date: 20170830
  Serious: No
  Sender: FDA-Public Use
  Company Number: US-TEVA-767613ACC

PATIENT
  Sex: Female

DRUGS (6)
  1. XARELTO [Concomitant]
     Active Substance: RIVAROXABAN
  2. COPAXONE [Suspect]
     Active Substance: GLATIRAMER ACETATE
     Indication: MULTIPLE SCLEROSIS
     Route: 058
     Dates: start: 20170211
  3. SIMVASTATIN. [Concomitant]
     Active Substance: SIMVASTATIN
  4. BACLOFEN. [Concomitant]
     Active Substance: BACLOFEN
  5. NEURONTIN [Concomitant]
     Active Substance: GABAPENTIN
  6. METHYLPHENIDATE. [Concomitant]
     Active Substance: METHYLPHENIDATE

REACTIONS (3)
  - Malaise [Unknown]
  - Drug dose omission [Unknown]
  - Infection [Unknown]

NARRATIVE: CASE EVENT DATE: 2017
